FAERS Safety Report 9515183 (Version 1)
Quarter: 2013Q3

REPORT INFORMATION
  Report Type: Spontaneous
  Country: CH (occurrence: CH)
  Receive Date: 20130911
  Receipt Date: 20130911
  Transmission Date: 20140515
  Serious: Yes (Other)
  Sender: FDA-Public Use
  Company Number: CH-COVIDIEN/TYCO HEALTHCARE/MALLINCKRODT-T201304310

PATIENT
  Age: 42 Year
  Sex: Female
  Weight: 70 kg

DRUGS (3)
  1. EXALGO EXTENDED RELEASE [Suspect]
     Indication: PAIN
     Dosage: 20 MG, 1 IN 1 DAY
     Route: 048
     Dates: start: 20130802
  2. PANTOPRAZOL [Suspect]
     Indication: DYSPEPSIA
     Dosage: 40 MG, 1 IN 1 DAY
     Route: 048
     Dates: start: 20121017
  3. EUTHYROX [Suspect]
     Indication: HYPOTHYROIDISM
     Dosage: 0.075 MG 1 IN 1 DAY
     Dates: start: 20121211

REACTIONS (3)
  - Pemphigoid [Not Recovered/Not Resolved]
  - Skin atrophy [Not Recovered/Not Resolved]
  - Pemphigus [Not Recovered/Not Resolved]
